FAERS Safety Report 4786189-3 (Version None)
Quarter: 2005Q3

REPORT INFORMATION
  Report Type: 
  Country: None (occurrence: None)
  Receive Date: 20050930
  Receipt Date: 20050919
  Transmission Date: 20060218
  Serious: Yes (Death)
  Sender: FDA-Public Use
  Company Number: DSA_27162_2005

PATIENT
  Age: 43 Year

DRUGS (2)
  1. NIFEDIPINE [Suspect]
     Dosage: DF PO
     Route: 048
  2. DIPHENHYDRAMINE HCL [Suspect]
     Dosage: DF PO
     Route: 048

REACTIONS (2)
  - COMPLETED SUICIDE [None]
  - INTENTIONAL MISUSE [None]
